FAERS Safety Report 10441797 (Version 1)
Quarter: 2014Q3

REPORT INFORMATION
  Report Type: Spontaneous
  Country: US (occurrence: US)
  Receive Date: 20140908
  Receipt Date: 20140908
  Transmission Date: 20150326
  Serious: Yes (Other)
  Sender: FDA-Public Use
  Company Number: US-PFIZER INC-2014245750

PATIENT
  Age: 63 Year
  Sex: Female
  Weight: 86.17 kg

DRUGS (4)
  1. NEXIUM [Concomitant]
     Active Substance: ESOMEPRAZOLE MAGNESIUM
     Dosage: 40 MG, 1X/DAY
  2. LYRICA [Suspect]
     Active Substance: PREGABALIN
     Indication: NEURALGIA
     Dosage: 100 MG, 4X/DAY
     Route: 048
     Dates: start: 2004
  3. HYDROCODONE [Concomitant]
     Active Substance: HYDROCODONE
     Indication: PAIN
     Dosage: 7.5 MG, UNK
  4. PAXIL [Concomitant]
     Active Substance: PAROXETINE HYDROCHLORIDE
     Dosage: UNK

REACTIONS (9)
  - Weight decreased [Unknown]
  - Pharyngeal mass [Unknown]
  - Speech disorder [Unknown]
  - Muscle atrophy [Unknown]
  - Tooth loss [Unknown]
  - Gastrointestinal disorder [Unknown]
  - Laryngeal disorder [Unknown]
  - Aphagia [Unknown]
  - Apparent death [Unknown]

NARRATIVE: CASE EVENT DATE: 2013
